FAERS Safety Report 12277368 (Version 1)
Quarter: 2016Q2

REPORT INFORMATION
  Report Type: Not Available
  Country: US (occurrence: US)
  Receive Date: 20160418
  Receipt Date: 20160418
  Transmission Date: 20160815
  Serious: No
  Sender: FDA-Public Use
  Company Number: US-ANIPHARMA-2015-US-000083

PATIENT
  Sex: Female

DRUGS (2)
  1. ALPRAZOLAM (NON-SPECIFIC) [Suspect]
     Active Substance: ALPRAZOLAM
  2. ZOFRAN 4MG [Concomitant]

REACTIONS (1)
  - Nightmare [Recovered/Resolved]
